FAERS Safety Report 23461836 (Version 1)
Quarter: 2024Q1

REPORT INFORMATION
  Report Type: Spontaneous
  Country: JP (occurrence: JP)
  Receive Date: 20240131
  Receipt Date: 20240131
  Transmission Date: 20240410
  Serious: Yes (Other)
  Sender: FDA-Public Use
  Company Number: JP-PFIZER INC-PV202400010906

PATIENT
  Age: 46 Year
  Sex: Male
  Weight: 87 kg

DRUGS (15)
  1. DEXMEDETOMIDINE HYDROCHLORIDE [Suspect]
     Active Substance: DEXMEDETOMIDINE HYDROCHLORIDE
     Indication: Sedation
     Dosage: 6 UG/KG, PER HOUR; STARTED AT 13:20
     Route: 042
  2. DEXMEDETOMIDINE HYDROCHLORIDE [Suspect]
     Active Substance: DEXMEDETOMIDINE HYDROCHLORIDE
     Dosage: REDUCED TO 0.7 UG/KG/H AT 13:30
  3. DEXMEDETOMIDINE HYDROCHLORIDE [Suspect]
     Active Substance: DEXMEDETOMIDINE HYDROCHLORIDE
     Dosage: AGAIN REDUCED TO 0.5 UG/KG, PER HOUR; AT AT 13:40
  4. DEXMEDETOMIDINE HYDROCHLORIDE [Suspect]
     Active Substance: DEXMEDETOMIDINE HYDROCHLORIDE
     Dosage: INFUSION WAS STOPPED AT 14:55
  5. EPHEDRINE [Suspect]
     Active Substance: EPHEDRINE
     Dosage: 5 MG AT 15:10
     Route: 042
  6. EPHEDRINE [Suspect]
     Active Substance: EPHEDRINE
     Dosage: 5 MG AT 15:45
  7. EPHEDRINE [Suspect]
     Active Substance: EPHEDRINE
     Dosage: 5 MG AT 16:05
  8. HYDROXYZINE [Concomitant]
     Active Substance: HYDROXYZINE HYDROCHLORIDE
     Dosage: 15 MG
     Route: 040
  9. CEFMETAZOLE [Concomitant]
     Active Substance: CEFMETAZOLE
     Dosage: 1 G; DILUTED WITH NORMAL SALINE (NS) 100 ML; INFUSION
     Route: 042
  10. SODIUM CHLORIDE [Concomitant]
     Active Substance: SODIUM CHLORIDE
     Dosage: 100 ML; (IV INFUSION OF CEFMETAZOLE 1 G DILUTED WITH NS)
  11. PENTAZOCINE [Concomitant]
     Active Substance: PENTAZOCINE
     Dosage: 12 MG; AT 13:28
     Route: 040
  12. LIDOCAINE [Concomitant]
     Active Substance: LIDOCAINE
     Indication: Local anaesthesia
     Dosage: 108 UG (TOTAL DOSE); AT 13:35; 2% LIDOCAINE WITH 1:80000
  13. EPINEPHRINE [Concomitant]
     Active Substance: EPINEPHRINE
     Indication: Local anaesthesia
     Dosage: 67.5 UG; (TOTAL DOSE); 2% LIDOCAINE WITH 1:80000
  14. SOLITA-T1 [Concomitant]
     Dosage: UNK (INCLUDES NA 90 MEQ/L, CL 70  MEQ/L, L-LACTATE 20 MEQ/L, GLUCOSE 2.6 G/DL)
     Route: 042
  15. ACETAMINOPHEN [Concomitant]
     Active Substance: ACETAMINOPHEN
     Indication: Postoperative analgesia
     Dosage: 1000 MG OVER 15 MINUTES
     Route: 042

REACTIONS (4)
  - Hypotension [Recovering/Resolving]
  - Bradycardia [Recovering/Resolving]
  - Ventricular tachycardia [Recovering/Resolving]
  - Arteriospasm coronary [Recovering/Resolving]
